FAERS Safety Report 23793120 (Version 1)
Quarter: 2024Q2

REPORT INFORMATION
  Report Type: Spontaneous
  Country: US (occurrence: US)
  Receive Date: 20240429
  Receipt Date: 20240429
  Transmission Date: 20240716
  Serious: No
  Sender: FDA-Public Use
  Company Number: US-ALKEM LABORATORIES LIMITED-US-ALKEM-2023-04681

PATIENT
  Sex: Female

DRUGS (1)
  1. DABIGATRAN ETEXILATE [Suspect]
     Active Substance: DABIGATRAN ETEXILATE
     Indication: Product use in unapproved indication
     Dosage: 150 MILLIGRAM
     Route: 048

REACTIONS (3)
  - Dyspnoea [Unknown]
  - Dyspepsia [Unknown]
  - Heart rate irregular [Unknown]
